FAERS Safety Report 10303201 (Version 2)
Quarter: 2014Q3

REPORT INFORMATION
  Report Type: Spontaneous
  Country: US (occurrence: US)
  Receive Date: 20140714
  Receipt Date: 20140714
  Transmission Date: 20150326
  Serious: Yes (Hospitalization, Other)
  Sender: FDA-Public Use
  Company Number: US-009507513-2011SP014602

PATIENT
  Sex: Female
  Weight: 74.84 kg

DRUGS (4)
  1. VALACYCLOVIR HYDROCHLORIDE. [Concomitant]
     Active Substance: VALACYCLOVIR HYDROCHLORIDE
     Indication: HERPES VIRUS INFECTION
     Dosage: 1 TAB PER DAY
     Dates: start: 1998
  2. NUVARING [Suspect]
     Active Substance: ETHINYL ESTRADIOL\ETONOGESTREL
     Indication: MENSTRUAL CYCLE MANAGEMENT
     Dosage: UNK
     Route: 067
     Dates: start: 20081029, end: 20091219
  3. RANITIDINE [Concomitant]
     Active Substance: RANITIDINE\RANITIDINE HYDROCHLORIDE
  4. OXYCODONE HYDROCHLORIDE. [Concomitant]
     Active Substance: OXYCODONE HYDROCHLORIDE
     Indication: BACK PAIN
     Dosage: I TAB AS NEEDED FOR PAIN
     Dates: start: 1998

REACTIONS (7)
  - Off label use [Unknown]
  - Pulmonary infarction [Recovering/Resolving]
  - Infusion site phlebitis [Unknown]
  - Pulmonary embolism [Recovered/Resolved]
  - Hepatic enzyme increased [Unknown]
  - Mental disorder [Unknown]
  - Infusion site infection [Unknown]

NARRATIVE: CASE EVENT DATE: 20090428
